FAERS Safety Report 5486903-8 (Version None)
Quarter: 2007Q3

REPORT INFORMATION
  Report Type: 
  Country: None (occurrence: None)
  Receive Date: 20070925
  Receipt Date: 20070628
  Transmission Date: 20080115
  Serious: No
  Sender: FDA-Public Use
  Company Number: 2007US001329

PATIENT
  Age: 82 Year
  Sex: Female
  Weight: 48.1 kg

DRUGS (6)
  1. VESICARE [Suspect]
     Indication: HYPERTONIC BLADDER
     Dosage: ORAL
     Route: 048
     Dates: start: 20070525, end: 20070621
  2. LOTENSIN [Concomitant]
  3. PREDNISONE TAB [Concomitant]
  4. ADVIL LIQUI-GELS [Concomitant]
  5. ZOCOR [Concomitant]
  6. FOSAMAX [Concomitant]

REACTIONS (1)
  - COUGH [None]
